FAERS Safety Report 10102453 (Version 2)
Quarter: 2014Q2

REPORT INFORMATION
  Report Type: Other
  Country: US (occurrence: US)
  Receive Date: 20140424
  Receipt Date: 20140628
  Transmission Date: 20141212
  Serious: Yes (Hospitalization, Other)
  Sender: FDA-Public Use
  Company Number: US-GSKPPD-2014GSK000285

PATIENT
  Age: 59 Year
  Sex: Male
  Weight: 82.63 kg

DRUGS (6)
  1. AVANDIA [Suspect]
     Indication: DIABETES MELLITUS
     Route: 048
     Dates: start: 2003, end: 2009
  2. ASPIRIN [Concomitant]
  3. COREG [Concomitant]
  4. LISINOPRIL [Concomitant]
  5. ZOCOR [Concomitant]
  6. METOPROLOL [Concomitant]

REACTIONS (1)
  - Acute myocardial infarction [None]
